FAERS Safety Report 15687294 (Version 1)
Quarter: 2018Q4

REPORT INFORMATION
  Report Type: Spontaneous
  Country: FR (occurrence: FR)
  Receive Date: 20181205
  Receipt Date: 20181205
  Transmission Date: 20190205
  Serious: Yes (Other)
  Sender: FDA-Public Use
  Company Number: FR-AUROBINDO-AUR-APL-2018-058199

PATIENT
  Age: 86 Year
  Sex: Female

DRUGS (1)
  1. RIVASTIGMINE. [Suspect]
     Active Substance: RIVASTIGMINE
     Indication: DEMENTIA ALZHEIMER^S TYPE
     Dosage: UNK
     Route: 065
     Dates: start: 201612, end: 2018

REACTIONS (3)
  - Condition aggravated [Not Recovered/Not Resolved]
  - Mini mental status examination abnormal [Not Recovered/Not Resolved]
  - Therapy cessation [Not Recovered/Not Resolved]

NARRATIVE: CASE EVENT DATE: 2018
